FAERS Safety Report 13642776 (Version 1)
Quarter: 2017Q2

REPORT INFORMATION
  Report Type: Spontaneous
  Country: JP (occurrence: JP)
  Receive Date: 20170612
  Receipt Date: 20170612
  Transmission Date: 20170830
  Serious: Yes (Other)
  Sender: FDA-Public Use
  Company Number: JP-PFIZER INC-2017253206

PATIENT

DRUGS (1)
  1. ALDACTONE A 25MG [Suspect]
     Active Substance: SPIRONOLACTONE
     Dosage: 25 MG, UNK

REACTIONS (1)
  - Gastric fistula [Unknown]
